FAERS Safety Report 4313559-X (Version None)
Quarter: 2004Q1

REPORT INFORMATION
  Report Type: 
  Country: None (occurrence: None)
  Receive Date: 20040304
  Receipt Date: 20040212
  Transmission Date: 20041129
  Serious: Yes (Death, Hospitalization)
  Sender: FDA-Public Use
  Company Number: EWC040137766

PATIENT
  Age: 46 Year
  Sex: Male

DRUGS (4)
  1. OLANZAPINE [Suspect]
     Indication: MENTAL DISORDER
     Dosage: 5 MG/DAY
     Dates: start: 20040113
  2. DEPAKENE [Concomitant]
  3. TRANXENE [Concomitant]
  4. GABAPENTIN [Concomitant]

REACTIONS (4)
  - CYANOSIS [None]
  - MUSCLE RIGIDITY [None]
  - PULMONARY EMBOLISM [None]
  - RESPIRATORY ARREST [None]
